FAERS Safety Report 8374778-9 (Version None)
Quarter: 2012Q2

REPORT INFORMATION
  Report Type: 
  Country: None (occurrence: None)
  Receive Date: 20120521
  Receipt Date: 20120515
  Transmission Date: 20120825
  Serious: Yes (Other)
  Sender: FDA-Public Use
  Company Number: US-ELI_LILLY_AND_COMPANY-US201205006040

PATIENT
  Age: 89 Year
  Sex: Female

DRUGS (3)
  1. HUMALOG [Suspect]
     Dosage: UNK, PRN
  2. HUMALOG [Suspect]
     Indication: DIABETES MELLITUS
     Dosage: UNK, PRN
  3. HUMALOG [Suspect]
     Dosage: UNK, PRN

REACTIONS (7)
  - DEMENTIA [None]
  - BLOOD GLUCOSE INCREASED [None]
  - DYSKINESIA [None]
  - UNRESPONSIVE TO STIMULI [None]
  - STARING [None]
  - LACK OF SPONTANEOUS SPEECH [None]
  - DRUG DOSE OMISSION [None]
